FAERS Safety Report 7304887-4 (Version None)
Quarter: 2011Q1

REPORT INFORMATION
  Report Type: 
  Country: None (occurrence: None)
  Receive Date: 20110222
  Receipt Date: 20110210
  Transmission Date: 20110831
  Serious: Yes (Other)
  Sender: FDA-Public Use
  Company Number: NL-ELI_LILLY_AND_COMPANY-NL201102002983

PATIENT
  Sex: Female
  Weight: 70 kg

DRUGS (9)
  1. IRBESARTAN [Concomitant]
     Indication: CARDIAC DISORDER
     Dosage: 300 MG, DAILY (1/D)
     Route: 048
     Dates: start: 20050101
  2. OMEPRAZOLE [Concomitant]
     Indication: GASTRIC DISORDER
     Dosage: 20 MG, DAILY (1/D)
     Route: 048
     Dates: start: 20050101
  3. VERAPAMIL [Concomitant]
     Indication: CARDIAC DISORDER
     Dosage: 240 MG, DAILY (1/D)
     Route: 048
     Dates: start: 20050101
  4. PAROXETINE [Concomitant]
     Indication: DEPRESSION
     Dosage: 30 MG, DAILY (1/D)
     Route: 048
     Dates: start: 20080101
  5. FUROSEMIDE [Concomitant]
     Indication: FLUID RETENTION
     Dosage: 20 MG, DAILY (1/D)
     Route: 048
     Dates: start: 20080101
  6. PHENPROCOUMON [Concomitant]
     Indication: THROMBOSIS
     Dosage: 3 MG, UNK
     Route: 048
     Dates: start: 20050101
  7. ROSUVASTATINE [Concomitant]
     Indication: BLOOD CHOLESTEROL INCREASED
     Dosage: 10 MG, DAILY (1/D)
     Route: 048
     Dates: start: 20050101
  8. TIOTROPIUM [Concomitant]
     Indication: CHRONIC OBSTRUCTIVE PULMONARY DISEASE
     Dosage: 18 UG, DAILY (1/D)
     Route: 055
     Dates: start: 20080101
  9. FORTEO [Suspect]
     Indication: OSTEOPOROSIS
     Dosage: 20 UG, DAILY (1/D)
     Route: 058
     Dates: start: 20100118, end: 20110208

REACTIONS (1)
  - DEMENTIA [None]
